FAERS Safety Report 9796089 (Version 1)
Quarter: 2014Q1

REPORT INFORMATION
  Report Type: Spontaneous
  Country: US (occurrence: US)
  Receive Date: 20140103
  Receipt Date: 20140103
  Transmission Date: 20141002
  Serious: No
  Sender: FDA-Public Use
  Company Number: US-PFIZER INC-2013374631

PATIENT
  Age: 62 Year
  Sex: Female

DRUGS (8)
  1. FELDENE [Suspect]
     Dosage: UNK
  2. HEPARIN SODIUM [Suspect]
     Dosage: UNK
  3. CLOZARIL [Suspect]
     Dosage: UNK
  4. RELAFEN [Suspect]
     Dosage: UNK
  5. CLONIDINE [Suspect]
     Dosage: UNK
  6. DOLOBID [Suspect]
     Dosage: UNK
  7. TRANDATE [Suspect]
     Dosage: UNK
  8. LODINE [Suspect]
     Dosage: UNK

REACTIONS (1)
  - Drug hypersensitivity [Unknown]
